FAERS Safety Report 17694505 (Version 4)
Quarter: 2020Q4

REPORT INFORMATION
  Report Type: Spontaneous
  Country: NL (occurrence: NL)
  Receive Date: 20200422
  Receipt Date: 20201009
  Transmission Date: 20210113
  Serious: Yes (Other)
  Sender: FDA-Public Use
  Company Number: NL-TOLMAR, INC.-2017NL000721

PATIENT
  Age: 65 Year
  Sex: Male

DRUGS (8)
  1. ELIGARD [Suspect]
     Active Substance: LEUPROLIDE ACETATE
     Indication: PROSTATE CANCER
     Dosage: 45 MG, Q 6 MONTH
     Route: 058
     Dates: start: 20160318
  2. ELIGARD [Suspect]
     Active Substance: LEUPROLIDE ACETATE
     Dosage: 45 MG, Q 6 MONTH
     Route: 058
     Dates: start: 20200804
  3. FLUOXETINE [Suspect]
     Active Substance: FLUOXETINE HYDROCHLORIDE
     Indication: ANTIDEPRESSANT THERAPY
     Dosage: 50 MG
     Route: 065
  4. CITALOPRAM [Suspect]
     Active Substance: CITALOPRAM HYDROBROMIDE
     Indication: ANTIDEPRESSANT THERAPY
     Dosage: 20 MG, BID
     Route: 065
     Dates: start: 201610
  5. ELIGARD [Suspect]
     Active Substance: LEUPROLIDE ACETATE
     Dosage: 45 MG, Q 6 MONTH
     Route: 058
     Dates: start: 20191031
  6. QUETIAPINE. [Suspect]
     Active Substance: QUETIAPINE
     Indication: ANTIDEPRESSANT THERAPY
     Dosage: 20 MG, QD
     Route: 065
     Dates: start: 201610, end: 2019
  7. QUETIAPINE. [Suspect]
     Active Substance: QUETIAPINE
     Dosage: 20 MG, QD
     Route: 065
     Dates: start: 202002
  8. ELIGARD [Suspect]
     Active Substance: LEUPROLIDE ACETATE
     Dosage: 45 MG, Q 6 MONTH
     Route: 058
     Dates: start: 20160913

REACTIONS (6)
  - Paraesthesia [Not Recovered/Not Resolved]
  - Depression [Not Recovered/Not Resolved]
  - Drug interaction [Unknown]
  - Product dose omission issue [Unknown]
  - Terminal insomnia [Unknown]
  - Affect lability [Not Recovered/Not Resolved]

NARRATIVE: CASE EVENT DATE: 2016
